FAERS Safety Report 11492232 (Version 2)
Quarter: 2015Q4

REPORT INFORMATION
  Report Type: Spontaneous
  Country: US (occurrence: US)
  Receive Date: 20150910
  Receipt Date: 20151020
  Transmission Date: 20160304
  Serious: No
  Sender: FDA-Public Use
  Company Number: US-PFIZER INC-2015298877

PATIENT
  Age: 61 Year
  Sex: Female

DRUGS (1)
  1. SERTRALINE HCL [Suspect]
     Active Substance: SERTRALINE HYDROCHLORIDE
     Indication: DEPRESSION
     Dosage: 150 MG DAILY, 150MG TABLETS, TAKEN AS 1 1/2 100 MG TABLETS

REACTIONS (4)
  - Feeling abnormal [Unknown]
  - Irritability [Unknown]
  - Drug effect incomplete [Unknown]
  - Anxiety [Unknown]
